FAERS Safety Report 17807760 (Version 3)
Quarter: 2021Q1

REPORT INFORMATION
  Report Type: Spontaneous
  Country: US (occurrence: US)
  Receive Date: 20200520
  Receipt Date: 20210111
  Transmission Date: 20210419
  Serious: Yes (Other)
  Sender: FDA-Public Use
  Company Number: US-PFIZER INC-2020199626

PATIENT
  Age: 66 Year
  Sex: Female
  Weight: 46.72 kg

DRUGS (1)
  1. IBRANCE [Suspect]
     Active Substance: PALBOCICLIB
     Indication: BREAST CANCER FEMALE
     Dosage: 125 MG, CYCLIC (I AM TAKING IT 21 DAYS AND OFF FOR ONE WEEK )
     Dates: start: 202003

REACTIONS (9)
  - Constipation [Unknown]
  - White blood cell count decreased [Unknown]
  - Diarrhoea [Unknown]
  - Haematocrit decreased [Unknown]
  - Fatigue [Unknown]
  - Neuropathy peripheral [Unknown]
  - Nausea [Unknown]
  - Product dose omission issue [Unknown]
  - Peripheral swelling [Unknown]
